FAERS Safety Report 9298852 (Version 2)
Quarter: 2013Q3

REPORT INFORMATION
  Report Type: Spontaneous
  Country: US (occurrence: US)
  Receive Date: 20130520
  Receipt Date: 20130802
  Transmission Date: 20140515
  Serious: Yes (Hospitalization, Other)
  Sender: FDA-Public Use
  Company Number: US-ASTRAZENECA-2013SE33575

PATIENT
  Age: 68 Year
  Sex: Male
  Weight: 91.2 kg

DRUGS (7)
  1. BRILINTA [Suspect]
     Indication: ACUTE CORONARY SYNDROME
     Dosage: LOADING DOSE 180 MG
     Route: 048
     Dates: start: 201303, end: 201303
  2. BRILINTA [Interacting]
     Indication: CORONARY ANGIOPLASTY
     Dosage: LOADING DOSE 180 MG
     Route: 048
     Dates: start: 201303, end: 201303
  3. BRILINTA [Interacting]
     Indication: ACUTE CORONARY SYNDROME
     Route: 048
     Dates: start: 20130408, end: 20130513
  4. BRILINTA [Interacting]
     Indication: CORONARY ANGIOPLASTY
     Route: 048
     Dates: start: 20130408, end: 20130513
  5. DEXAMETHASONE [Interacting]
  6. PLAVIX [Concomitant]
  7. ASPIRIN [Concomitant]
     Indication: CORONARY ANGIOPLASTY
     Route: 048
     Dates: start: 20130408

REACTIONS (5)
  - Drug interaction [Unknown]
  - Platelet aggregation inhibition [Unknown]
  - Epistaxis [Recovered/Resolved]
  - Cataract [Unknown]
  - Retinal detachment [Unknown]
